FAERS Safety Report 20874267 (Version 2)
Quarter: 2023Q2

REPORT INFORMATION
  Report Type: Spontaneous
  Country: CA (occurrence: CA)
  Receive Date: 20220525
  Receipt Date: 20230628
  Transmission Date: 20230722
  Serious: Yes (Other)
  Sender: FDA-Public Use
  Company Number: CA-NAPPMUNDI-GBR-2022-0095311

PATIENT
  Age: 58 Year
  Sex: Male

DRUGS (3)
  1. HYDROMORPHONE HYDROCHLORIDE [Suspect]
     Active Substance: HYDROMORPHONE HYDROCHLORIDE
     Indication: Pain
     Dosage: UNK
     Route: 065
  2. VEDOLIZUMAB [Suspect]
     Active Substance: VEDOLIZUMAB
     Indication: Crohn^s disease
     Dosage: 300 MG, UNK
     Route: 042
  3. CORTIFOAM [Concomitant]
     Active Substance: HYDROCORTISONE ACETATE
     Indication: Product used for unknown indication
     Dosage: UNK
     Route: 065

REACTIONS (8)
  - Constipation [Recovered/Resolved]
  - Abdominal pain [Recovered/Resolved]
  - Drug ineffective [Recovered/Resolved]
  - Drug level decreased [Recovered/Resolved]
  - Drug specific antibody [Recovered/Resolved]
  - Fatigue [Recovered/Resolved]
  - Intestinal obstruction [Recovered/Resolved]
  - Nephrolithiasis [Recovered/Resolved]
